FAERS Safety Report 7782200-6 (Version None)
Quarter: 2011Q3

REPORT INFORMATION
  Report Type: 
  Country: None (occurrence: None)
  Receive Date: 20110927
  Receipt Date: 20110914
  Transmission Date: 20111222
  Serious: Yes (Other)
  Sender: FDA-Public Use
  Company Number: JP-SANOFI-AVENTIS-2011SA061755

PATIENT
  Age: 73 Year
  Sex: Male

DRUGS (1)
  1. GLIMEPIRIDE [Suspect]
     Indication: DIABETES MELLITUS
     Route: 065

REACTIONS (10)
  - LYMPHADENOPATHY [None]
  - BLOOD UREA INCREASED [None]
  - BLOOD IMMUNOGLOBULIN G INCREASED [None]
  - SALIVARY GLAND ENLARGEMENT [None]
  - PROTEIN TOTAL INCREASED [None]
  - RENAL FAILURE [None]
  - BLOOD CREATININE INCREASED [None]
  - HYPOCOMPLEMENTAEMIA [None]
  - NEPHROPATHY [None]
  - PROTEIN URINE PRESENT [None]
